FAERS Safety Report 20043254 (Version 1)
Quarter: 2021Q4

REPORT INFORMATION
  Report Type: Spontaneous
  Country: US (occurrence: US)
  Receive Date: 20211108
  Receipt Date: 20211108
  Transmission Date: 20220303
  Serious: No
  Sender: FDA-Public Use
  Company Number: US-SANOFI-00836721

PATIENT
  Age: 86 Year
  Sex: Female

DRUGS (2)
  1. DUPIXENT [Suspect]
     Active Substance: DUPILUMAB
     Indication: Pruritus
     Dosage: DRUG STRUCTURE DOSAGE : 300 MG DRUG INTERVAL DOSAGE : EVERY TWO WEEKS
  2. COVID-19 VACCINE NOS [Suspect]
     Active Substance: COVID-19 VACCINE NOS
     Indication: Immunisation

REACTIONS (2)
  - Adverse event [Unknown]
  - Product use in unapproved indication [Unknown]
